FAERS Safety Report 15526189 (Version 6)
Quarter: 2020Q1

REPORT INFORMATION
  Report Type: Spontaneous
  Country: US (occurrence: US)
  Receive Date: 20181018
  Receipt Date: 20200204
  Transmission Date: 20200409
  Serious: Yes (Other)
  Sender: FDA-Public Use
  Company Number: US-ASTRAZENECA-2018SF31509

PATIENT
  Age: 26620 Day
  Sex: Female
  Weight: 93.3 kg

DRUGS (35)
  1. NEXIUM [Suspect]
     Active Substance: ESOMEPRAZOLE MAGNESIUM
     Indication: GASTRIC PH
     Dosage: 40.0MG UNKNOWN
     Route: 048
     Dates: start: 200906
  2. LISINOPRIL. [Concomitant]
     Active Substance: LISINOPRIL
  3. LYRICA [Concomitant]
     Active Substance: PREGABALIN
  4. PRAVASTATIN. [Concomitant]
     Active Substance: PRAVASTATIN
  5. KETOCONAZOLE. [Concomitant]
     Active Substance: KETOCONAZOLE
     Indication: FUNGAL INFECTION
     Dates: start: 2014
  6. FENOFIBRATE. [Concomitant]
     Active Substance: FENOFIBRATE
  7. FLUVIRIN NOS [Concomitant]
     Active Substance: INFLUENZA VIRUS VACCINE
  8. HUMALOG [Concomitant]
     Active Substance: INSULIN LISPRO
     Indication: DIABETES MELLITUS
     Dates: start: 2016
  9. PITAVASTATIN. [Concomitant]
     Active Substance: PITAVASTATIN CALCIUM
     Dates: start: 20131106
  10. NEXIUM [Suspect]
     Active Substance: ESOMEPRAZOLE MAGNESIUM
     Indication: GASTRIC PH
     Route: 048
     Dates: start: 2001, end: 2002
  11. NEXIUM [Suspect]
     Active Substance: ESOMEPRAZOLE MAGNESIUM
     Indication: GASTRIC PH
     Dosage: 40.0MG UNKNOWN
     Route: 048
     Dates: start: 200108, end: 200205
  12. NEXIUM [Suspect]
     Active Substance: ESOMEPRAZOLE MAGNESIUM
     Indication: GASTRIC PH
     Dosage: 40.0MG UNKNOWN
     Route: 048
     Dates: start: 201303, end: 201305
  13. ZOCOR [Concomitant]
     Active Substance: SIMVASTATIN
     Dates: start: 20020227
  14. LIVALO [Concomitant]
     Active Substance: PITAVASTATIN CALCIUM
     Dates: start: 20131106
  15. VESICARE [Concomitant]
     Active Substance: SOLIFENACIN SUCCINATE
     Dates: start: 20141028
  16. FUROSEMIDE. [Concomitant]
     Active Substance: FUROSEMIDE
  17. NEXIUM [Suspect]
     Active Substance: ESOMEPRAZOLE MAGNESIUM
     Indication: GASTRIC PH
     Dosage: 40.0MG UNKNOWN
     Route: 048
     Dates: start: 201411
  18. GLUCOPHAGE [Concomitant]
     Active Substance: METFORMIN HYDROCHLORIDE
     Dates: start: 20020227
  19. DETROL [Concomitant]
     Active Substance: TOLTERODINE TARTRATE
  20. NYSTATIN. [Concomitant]
     Active Substance: NYSTATIN
     Indication: FUNGAL INFECTION
     Dates: start: 2014
  21. ROPINIROLE. [Concomitant]
     Active Substance: ROPINIROLE
     Indication: RESTLESS LEGS SYNDROME
     Dates: start: 2014
  22. VITAMIN D [Concomitant]
     Active Substance: VITAMIN D NOS
     Indication: BLOOD CALCIUM DECREASED
     Dates: start: 1993
  23. HYZAAR [Concomitant]
     Active Substance: HYDROCHLOROTHIAZIDE\LOSARTAN POTASSIUM
     Dates: start: 20020227
  24. TOUJEO [Concomitant]
     Active Substance: INSULIN GLARGINE
     Indication: DIABETES MELLITUS
     Dates: start: 2016
  25. ASPIRIN. [Concomitant]
     Active Substance: ASPIRIN
     Indication: PAIN
     Dates: start: 1993
  26. LOVASTATIN. [Concomitant]
     Active Substance: LOVASTATIN
  27. LOVASTATIN. [Concomitant]
     Active Substance: LOVASTATIN
  28. TRAMADOL. [Concomitant]
     Active Substance: TRAMADOL
  29. TAGAMET [Concomitant]
     Active Substance: CIMETIDINE
  30. FLUTICASONE. [Concomitant]
     Active Substance: FLUTICASONE
     Dates: start: 20131106
  31. NEXIUM [Suspect]
     Active Substance: ESOMEPRAZOLE MAGNESIUM
     Indication: GASTRIC PH
     Dosage: UNKNOWN
     Route: 048
     Dates: start: 2009, end: 2014
  32. JANUMET [Concomitant]
     Active Substance: METFORMIN HYDROCHLORIDE\SITAGLIPTIN PHOSPHATE
     Indication: DIABETES MELLITUS
     Dates: start: 2013
  33. ZETIA [Concomitant]
     Active Substance: EZETIMIBE
  34. GLIPIZIDE. [Concomitant]
     Active Substance: GLIPIZIDE
  35. CIPROFLOXACIN. [Concomitant]
     Active Substance: CIPROFLOXACIN
     Dates: start: 20131106

REACTIONS (8)
  - Renal failure [Unknown]
  - End stage renal disease [Unknown]
  - Acute kidney injury [Unknown]
  - Chronic kidney disease [Not Recovered/Not Resolved]
  - Renal tubular necrosis [Unknown]
  - Renal impairment [Unknown]
  - Nephrogenic anaemia [Unknown]
  - Hyperparathyroidism secondary [Unknown]

NARRATIVE: CASE EVENT DATE: 20141122
